FAERS Safety Report 6917002-3 (Version None)
Quarter: 2010Q3

REPORT INFORMATION
  Report Type: 
  Country: None (occurrence: None)
  Receive Date: 20100810
  Receipt Date: 20100730
  Transmission Date: 20110219
  Serious: Yes (Hospitalization)
  Sender: FDA-Public Use
  Company Number: A0864055A

PATIENT
  Age: 73 Year
  Sex: Female
  Weight: 96.8 kg

DRUGS (10)
  1. AVANDIA [Suspect]
     Indication: DIABETES MELLITUS
     Dosage: 4MG TWICE PER DAY
     Route: 048
     Dates: start: 20020101, end: 20070101
  2. AVANDAMET [Suspect]
  3. ASPIRIN [Concomitant]
  4. VIOXX [Concomitant]
  5. ENALAPRIL [Concomitant]
  6. IMDUR [Concomitant]
  7. LASIX [Concomitant]
  8. LIPITOR [Concomitant]
  9. METOPROLOL [Concomitant]
  10. SYNTHROID [Concomitant]

REACTIONS (5)
  - CARDIAC FAILURE CONGESTIVE [None]
  - CORONARY ARTERY DISEASE [None]
  - FLUID RETENTION [None]
  - MYOCARDIAL INFARCTION [None]
  - PERIPHERAL VASCULAR DISORDER [None]
